FAERS Safety Report 6508703-X (Version None)
Quarter: 2009Q4

REPORT INFORMATION
  Report Type: 
  Country: None (occurrence: None)
  Receive Date: 20091221
  Receipt Date: 20090810
  Transmission Date: 20100525
  Serious: No
  Sender: FDA-Public Use
  Company Number: US-ASTRAZENECA-2009SE07382

PATIENT
  Sex: Female
  Weight: 61.2 kg

DRUGS (3)
  1. CRESTOR [Suspect]
     Route: 048
     Dates: start: 20070101, end: 20090101
  2. DIOVAN [Concomitant]
  3. VITAMINS [Concomitant]

REACTIONS (2)
  - HYPOAESTHESIA [None]
  - PAIN IN EXTREMITY [None]
